FAERS Safety Report 22399764 (Version 1)
Quarter: 2023Q2

REPORT INFORMATION
  Report Type: Spontaneous
  Country: CA (occurrence: CA)
  Receive Date: 20230602
  Receipt Date: 20230602
  Transmission Date: 20230722
  Serious: Yes (Hospitalization)
  Sender: FDA-Public Use
  Company Number: CA-FreseniusKabi-FK202307282

PATIENT
  Age: 60 Year
  Sex: Female

DRUGS (4)
  1. HEPARIN [Suspect]
     Active Substance: HEPARIN SODIUM
     Indication: Product used for unknown indication
     Route: 065
  2. GUSELKUMAB [Suspect]
     Active Substance: GUSELKUMAB
     Indication: Psoriasis
     Route: 058
  3. GUSELKUMAB [Suspect]
     Active Substance: GUSELKUMAB
     Route: 058
  4. GUSELKUMAB [Suspect]
     Active Substance: GUSELKUMAB
     Route: 065

REACTIONS (5)
  - Angiogram [Unknown]
  - Aortic valve replacement [Unknown]
  - COVID-19 [Unknown]
  - Procedural complication [Unknown]
  - Heparin-induced thrombocytopenia [Unknown]
